FAERS Safety Report 7954782-2 (Version None)
Quarter: 2011Q4

REPORT INFORMATION
  Report Type: 
  Country: None (occurrence: None)
  Receive Date: 20111202
  Receipt Date: 20111119
  Transmission Date: 20120403
  Serious: Yes (Life-Threatening, Hospitalization)
  Sender: FDA-Public Use
  Company Number: US-ROCHE-1018031

PATIENT
  Age: 75 Year
  Sex: Female

DRUGS (4)
  1. CARBOPLATIN [Suspect]
     Indication: FALLOPIAN TUBE CANCER
     Dosage: AUC 6 IP ON DAY 1, LAST DOSE PRIOR TO SAE: 21/NOV/2011
     Dates: start: 20110613
  2. AVASTIN [Suspect]
     Indication: FALLOPIAN TUBE CANCER
     Dosage: IV OVER 30-90 MIN ON DAY 1, BEGINNING WITH CYCLE 2.PHASE A CYCLE 16, LAST DOSE PRIOR TO SAE: 21/NOV/
     Route: 042
     Dates: start: 20110613
  3. AVASTIN [Suspect]
     Dosage: IV OVER 30-90 MIN ON DAY 1. PHASE B CYCLE: 7-22
  4. PACLITAXEL [Suspect]
     Indication: FALLOPIAN TUBE CANCER
     Dosage: IV OVER 1 HR ON DAYS 1, 8 + 15.LAST DOSE PRIOR TO SAE: 21/NOV/2011
     Route: 042
     Dates: start: 20110613

REACTIONS (6)
  - CONVULSION [None]
  - ENCEPHALOPATHY [None]
  - CONFUSIONAL STATE [None]
  - FEBRILE NEUTROPENIA [None]
  - DEHYDRATION [None]
  - HYPERTENSION [None]
